FAERS Safety Report 24353453 (Version 1)
Quarter: 2024Q3

REPORT INFORMATION
  Report Type: Spontaneous
  Country: RU (occurrence: RU)
  Receive Date: 20240923
  Receipt Date: 20240923
  Transmission Date: 20241017
  Serious: No
  Sender: ROCHE
  Company Number: RU-ROCHE-3449946

PATIENT
  Age: 44 Year
  Sex: Female

DRUGS (6)
  1. TRASTUZUMAB [Suspect]
     Active Substance: TRASTUZUMAB
     Indication: Breast cancer
     Route: 041
  2. PERTUZUMAB [Suspect]
     Active Substance: PERTUZUMAB
     Indication: Breast cancer
     Dosage: LOADING DOSE OF 840 MG
     Route: 042
  3. ADO-TRASTUZUMAB EMTANSINE [Suspect]
     Active Substance: ADO-TRASTUZUMAB EMTANSINE
     Indication: Breast cancer
     Dosage: FROM 13/OCT/2022 TO 23/AUG/2023, 14 CYCLES WERE PERFORMED WITH TRASTUZUMAB EMTANSINE 3.6 MG/KG ON DA
     Route: 042
     Dates: start: 20221013
  4. DOCETAXEL [Suspect]
     Active Substance: DOCETAXEL\DOCETAXEL ANHYDROUS
     Indication: Breast cancer
     Route: 042
  5. CARBOPLATIN [Suspect]
     Active Substance: CARBOPLATIN
     Indication: Breast cancer
     Route: 042
  6. ANASTROZOLE [Concomitant]
     Active Substance: ANASTROZOLE
     Dates: start: 202210

REACTIONS (2)
  - Haemangioma of liver [Unknown]
  - Uterine leiomyoma [Unknown]
